FAERS Safety Report 20535870 (Version 1)
Quarter: 2022Q1

REPORT INFORMATION
  Report Type: Spontaneous
  Country: DE (occurrence: DE)
  Receive Date: 20220302
  Receipt Date: 20220302
  Transmission Date: 20220424
  Serious: Yes (Hospitalization)
  Sender: FDA-Public Use
  Company Number: DE-DCGMA-21189256

PATIENT
  Age: 70 Year
  Sex: Male
  Weight: 97 kg

DRUGS (2)
  1. ERLEADA [Suspect]
     Active Substance: APALUTAMIDE
     Indication: Prostate cancer
     Route: 048
     Dates: start: 20210106, end: 20210319
  2. LENPERONE [Concomitant]
     Active Substance: LENPERONE
     Indication: Prostate cancer
     Route: 058
     Dates: start: 20201207

REACTIONS (3)
  - Bradycardia [Recovered/Resolved]
  - Sinus arrhythmia [Recovered/Resolved]
  - Dizziness [Recovered/Resolved]

NARRATIVE: CASE EVENT DATE: 20210127
